FAERS Safety Report 14277792 (Version 3)
Quarter: 2018Q1

REPORT INFORMATION
  Report Type: Spontaneous
  Country: US (occurrence: US)
  Receive Date: 20171212
  Receipt Date: 20180123
  Transmission Date: 20180508
  Serious: Yes (Hospitalization)
  Sender: FDA-Public Use
  Company Number: US-PFIZER INC-2017525426

PATIENT
  Age: 84 Year
  Sex: Male
  Weight: 82 kg

DRUGS (2)
  1. SUTENT [Suspect]
     Active Substance: SUNITINIB MALATE
     Indication: RENAL CANCER
     Dosage: 37.5 MG, ONCE DAILY
     Route: 048
     Dates: start: 20171128
  2. SUTENT [Suspect]
     Active Substance: SUNITINIB MALATE
     Dosage: 37.5 MG, DAILY
     Route: 048
     Dates: start: 20171127, end: 201801

REACTIONS (4)
  - Disorientation [Unknown]
  - Syncope [Unknown]
  - Lip swelling [Unknown]
  - Oral herpes [Unknown]

NARRATIVE: CASE EVENT DATE: 2017
